FAERS Safety Report 23752073 (Version 1)
Quarter: 2024Q2

REPORT INFORMATION
  Report Type: Spontaneous
  Country: US (occurrence: US)
  Receive Date: 20240417
  Receipt Date: 20240417
  Transmission Date: 20240716
  Serious: Yes (Other)
  Sender: FDA-Public Use
  Company Number: US-INCYTE CORPORATION-2024IN003887

PATIENT

DRUGS (1)
  1. JAKAFI [Suspect]
     Active Substance: RUXOLITINIB
     Indication: Myelofibrosis
     Dosage: 5 MILLIGRAM, BID
     Route: 048
     Dates: start: 20240319

REACTIONS (12)
  - Rectal haemorrhage [Unknown]
  - Rectal discharge [Unknown]
  - Bowel movement irregularity [Unknown]
  - White blood cell count decreased [Unknown]
  - Platelet count increased [Unknown]
  - Nausea [Unknown]
  - Visual impairment [Unknown]
  - Decreased appetite [Unknown]
  - Thirst [Unknown]
  - Eructation [Unknown]
  - Anaemia [Unknown]
  - Dizziness [Unknown]

NARRATIVE: CASE EVENT DATE: 20240412
